FAERS Safety Report 22285500 (Version 1)
Quarter: 2023Q2

REPORT INFORMATION
  Report Type: Spontaneous
  Country: US (occurrence: US)
  Receive Date: 20230504
  Receipt Date: 20230504
  Transmission Date: 20230721
  Serious: No
  Sender: FDA-Public Use
  Company Number: US-PFIZER INC-202300175861

PATIENT
  Age: 44 Year
  Sex: Female

DRUGS (1)
  1. ALDACTONE [Suspect]
     Active Substance: SPIRONOLACTONE
     Indication: Peripheral swelling
     Dosage: UNK
     Dates: start: 2023

REACTIONS (1)
  - Drug ineffective [Not Recovered/Not Resolved]
